FAERS Safety Report 7626373-4 (Version None)
Quarter: 2011Q3

REPORT INFORMATION
  Report Type: 
  Country: None (occurrence: None)
  Receive Date: 20110714
  Receipt Date: 20110629
  Transmission Date: 20111222
  Serious: Yes (Other)
  Sender: FDA-Public Use
  Company Number: MC201100296

PATIENT
  Age: 65 Year
  Sex: Female
  Weight: 102.5 kg

DRUGS (11)
  1. VERAPAMIL HYDROCHLORIDE [Concomitant]
  2. OPTIRAY (LOVERSOL) [Concomitant]
  3. FENTANYL [Concomitant]
  4. MIDAZOLAM HCL [Concomitant]
  5. NITROGLYCERIN [Concomitant]
  6. ANGIOMAX [Suspect]
     Indication: PERCUTANEOUS CORONARY INTERVENTION
     Dosage: 15 ML, BOLUS, INTRAVENOUS 1.75 MG/KG, HR, INTRAVENOUS
     Route: 042
     Dates: start: 20110629
  7. ANGIOMAX [Suspect]
     Indication: PERCUTANEOUS CORONARY INTERVENTION
     Dosage: 15 ML, BOLUS, INTRAVENOUS 1.75 MG/KG, HR, INTRAVENOUS
     Route: 042
     Dates: start: 20110629, end: 20110629
  8. REOPRO [Concomitant]
  9. OXYGEN (OXYGEN) [Concomitant]
  10. LIDOCAINE [Concomitant]
  11. EFFIENT [Concomitant]

REACTIONS (3)
  - CORONARY ARTERY OCCLUSION [None]
  - LOSS OF CONSCIOUSNESS [None]
  - THROMBOSIS IN DEVICE [None]
